FAERS Safety Report 8775418 (Version 2)
Quarter: 2013Q2

REPORT INFORMATION
  Report Type: Report from Study
  Country: BR (occurrence: BR)
  Receive Date: 20120910
  Receipt Date: 20130613
  Transmission Date: 20140414
  Serious: Yes (Hospitalization, Other)
  Sender: FDA-Public Use
  Company Number: BR-ROCHE-1084529

PATIENT
  Age: 56 Year
  Sex: Female
  Weight: 70 kg

DRUGS (11)
  1. MABTHERA [Suspect]
     Indication: RHEUMATOID ARTHRITIS
     Route: 042
     Dates: start: 20111201, end: 20120621
  2. CYCLOSPORINE [Concomitant]
     Route: 065
  3. CEFEXIN [Concomitant]
  4. GABAPENTIN [Concomitant]
  5. TRAMAL [Concomitant]
  6. STILNOX [Concomitant]
  7. PROFENID [Concomitant]
     Route: 065
  8. TORAGESIC [Concomitant]
  9. ADVIL [Concomitant]
     Route: 065
  10. SYNTHROID [Concomitant]
     Route: 065
  11. EFFEXOR [Concomitant]

REACTIONS (17)
  - Muscular weakness [Not Recovered/Not Resolved]
  - Rash [Unknown]
  - Eyelid oedema [Unknown]
  - Oedema peripheral [Unknown]
  - Venous insufficiency [Unknown]
  - Vascular rupture [Unknown]
  - Haematoma [Unknown]
  - Decreased appetite [Unknown]
  - Tremor [Unknown]
  - Hypertension [Not Recovered/Not Resolved]
  - Inflammation [Unknown]
  - Unevaluable event [Unknown]
  - Pain [Unknown]
  - Inflammation [Recovered/Resolved]
  - Pain [Recovered/Resolved]
  - Lymphocyte count decreased [Recovered/Resolved]
  - Drug ineffective [Unknown]
